FAERS Safety Report 6313645-9 (Version None)
Quarter: 2009Q3

REPORT INFORMATION
  Report Type: 
  Country: None (occurrence: None)
  Receive Date: 20090817
  Receipt Date: 20090817
  Transmission Date: 20100115
  Serious: Yes (Life-Threatening)
  Sender: FDA-Public Use
  Company Number: None

PATIENT
  Age: 58 Year
  Sex: Male

DRUGS (1)
  1. GLYBURIDE [Suspect]
     Indication: DIABETES MELLITUS
     Dosage: 5MG BID PO
     Route: 048
     Dates: start: 20090317, end: 20090513

REACTIONS (14)
  - APLASTIC ANAEMIA [None]
  - CYTOMEGALOVIRUS INFECTION [None]
  - DIZZINESS [None]
  - DYSPNOEA [None]
  - EPSTEIN-BARR VIRUS INFECTION [None]
  - FATIGUE [None]
  - HEARING IMPAIRED [None]
  - HEPATITIS [None]
  - HIV INFECTION [None]
  - MYALGIA [None]
  - ORAL NEOPLASM [None]
  - PANCYTOPENIA [None]
  - RASH ERYTHEMATOUS [None]
  - SWELLING FACE [None]
